FAERS Safety Report 7658795-X (Version None)
Quarter: 2011Q3

REPORT INFORMATION
  Report Type: 
  Country: None (occurrence: None)
  Receive Date: 20110805
  Receipt Date: 20110805
  Transmission Date: 20111222
  Serious: No
  Sender: FDA-Public Use
  Company Number: None

PATIENT
  Age: 47 Year
  Sex: Male
  Weight: 73.481 kg

DRUGS (1)
  1. TRETINOIN [Suspect]
     Indication: ACNE
     Dosage: SCANT APLICATION 60% OF FACE
     Route: 061
     Dates: start: 20110622, end: 20110729

REACTIONS (3)
  - BURNING SENSATION [None]
  - SKIN EXFOLIATION [None]
  - ERYTHEMA [None]
